FAERS Safety Report 5396005-7 (Version None)
Quarter: 2007Q3

REPORT INFORMATION
  Report Type: 
  Country: None (occurrence: None)
  Receive Date: 20070718
  Receipt Date: 20061011
  Transmission Date: 20080115
  Serious: Yes (Death, Hospitalization, Other)
  Sender: FDA-Public Use
  Company Number: 2006128062

PATIENT
  Age: 55 Year
  Sex: Male
  Weight: 96.1626 kg

DRUGS (1)
  1. CELEBREX [Suspect]
     Indication: BACK PAIN
     Dosage: 400 MG (200 MG, 1 IN 2 D)
     Dates: start: 20011231, end: 20031117

REACTIONS (1)
  - MYOCARDIAL INFARCTION [None]
